FAERS Safety Report 15796003 (Version 4)
Quarter: 2019Q2

REPORT INFORMATION
  Report Type: Report from Study
  Country: None (occurrence: US)
  Receive Date: 20190107
  Receipt Date: 20190429
  Transmission Date: 20190711
  Serious: Yes (Hospitalization, Other)
  Sender: FDA-Public Use
  Company Number: US-ABBVIE-18K-163-2510957-00

PATIENT
  Age: 65 Year
  Sex: Male
  Weight: 54.48 kg

DRUGS (6)
  1. HUMIRA [Suspect]
     Active Substance: ADALIMUMAB
     Dosage: DAY 15 OR 16
     Route: 058
     Dates: start: 2018, end: 2018
  2. HUMIRA [Suspect]
     Active Substance: ADALIMUMAB
     Route: 058
     Dates: start: 20181014, end: 2018
  3. HUMIRA [Suspect]
     Active Substance: ADALIMUMAB
     Route: 058
     Dates: start: 20181230, end: 20190113
  4. HUMIRA [Suspect]
     Active Substance: ADALIMUMAB
     Dosage: DAY 02
     Route: 058
     Dates: start: 201809, end: 201809
  5. HUMIRA [Suspect]
     Active Substance: ADALIMUMAB
     Route: 058
     Dates: start: 2018, end: 201812
  6. HUMIRA [Suspect]
     Active Substance: ADALIMUMAB
     Indication: CROHN^S DISEASE
     Dosage: DAY 01
     Route: 058
     Dates: start: 201809, end: 201809

REACTIONS (13)
  - Gastrointestinal inflammation [Unknown]
  - Insomnia [Not Recovered/Not Resolved]
  - Weight decreased [Recovering/Resolving]
  - Malaise [Not Recovered/Not Resolved]
  - Abnormal faeces [Unknown]
  - Abdominal pain upper [Recovered/Resolved]
  - Diarrhoea [Not Recovered/Not Resolved]
  - Gastrointestinal pain [Recovering/Resolving]
  - Abdominal pain [Recovered/Resolved]
  - Gastrointestinal obstruction [Unknown]
  - Abdominal pain [Recovered/Resolved]
  - Decreased appetite [Not Recovered/Not Resolved]
  - Vomiting [Recovered/Resolved]

NARRATIVE: CASE EVENT DATE: 20180213
